FAERS Safety Report 5208384-1 (Version None)
Quarter: 2007Q1

REPORT INFORMATION
  Report Type: 
  Country: None (occurrence: None)
  Receive Date: 20070115
  Receipt Date: 20070102
  Transmission Date: 20070707
  Serious: Yes (Death)
  Sender: FDA-Public Use
  Company Number: US-ELI_LILLY_AND_COMPANY-US200701000193

PATIENT
  Age: 53 Year
  Sex: Male

DRUGS (3)
  1. CYMBALTA [Suspect]
     Dosage: 60 MG, DAILY (1/D)
     Dates: start: 20060602
  2. RITALIN [Concomitant]
     Dosage: 10 MG, 4/D
     Dates: start: 20050101
  3. KLONOPIN [Concomitant]
     Dosage: 1 MG, 3/D
     Dates: start: 20050101

REACTIONS (6)
  - ALCOHOLISM [None]
  - ANAEMIA [None]
  - ANXIETY [None]
  - DEATH [None]
  - DEPRESSION [None]
  - PALLOR [None]
